FAERS Safety Report 12268432 (Version 3)
Quarter: 2017Q3

REPORT INFORMATION
  Report Type: Spontaneous
  Country: US (occurrence: US)
  Receive Date: 20160414
  Receipt Date: 20170915
  Transmission Date: 20171127
  Serious: Yes (Hospitalization)
  Sender: FDA-Public Use
  Company Number: US-PFIZER INC-2016171223

PATIENT
  Age: 58 Year
  Sex: Male
  Weight: 147 kg

DRUGS (2)
  1. SOMAVERT [Suspect]
     Active Substance: PEGVISOMANT
     Dosage: UNK (30MG 4 DAYS A WEEK, AND 60MG 3 DAYS A WEEK)
     Dates: start: 20160307
  2. SOMAVERT [Suspect]
     Active Substance: PEGVISOMANT
     Indication: ACROMEGALY
     Dosage: 10 MG, 1X/DAY
     Dates: start: 20160307, end: 20160311

REACTIONS (8)
  - Ocular hyperaemia [Recovered/Resolved]
  - Hypersensitivity [Recovered/Resolved]
  - Product use issue [Unknown]
  - Eye swelling [Recovered/Resolved]
  - Nausea [Recovered/Resolved]
  - Vomiting [Recovered/Resolved]
  - Eye oedema [Recovered/Resolved]
  - Atrial fibrillation [Unknown]

NARRATIVE: CASE EVENT DATE: 2016
